FAERS Safety Report 4607177-3 (Version None)
Quarter: 2005Q1

REPORT INFORMATION
  Report Type: 
  Country: None (occurrence: None)
  Receive Date: 20050309
  Receipt Date: 20050225
  Transmission Date: 20050727
  Serious: Yes (Death)
  Sender: FDA-Public Use
  Company Number: MK200502-0265-1

PATIENT
  Age: 56 Year
  Sex: Female

DRUGS (5)
  1. ANAFRANIL CAP [Suspect]
  2. ACETAMINOPHEN [Concomitant]
  3. HYDROCODONE BITARTRATE [Concomitant]
  4. BENZTROPINE [Concomitant]
  5. DILTIAZEM [Concomitant]

REACTIONS (1)
  - MULTIPLE DRUG OVERDOSE [None]
